FAERS Safety Report 25806980 (Version 1)
Quarter: 2025Q3

REPORT INFORMATION
  Report Type: Spontaneous
  Country: US (occurrence: US)
  Receive Date: 20250916
  Receipt Date: 20250916
  Transmission Date: 20251020
  Serious: Yes (Hospitalization, Other)
  Sender: BAYER HEALTHCARE PHARMACEUTICALS INC.
  Company Number: US-BAYER-2025A120396

PATIENT
  Age: 66 Year
  Sex: Male

DRUGS (8)
  1. ADEMPAS [Suspect]
     Active Substance: RIOCIGUAT
  2. TYVASO DPI [Suspect]
     Active Substance: TREPROSTINIL
     Indication: Pulmonary arterial hypertension
     Dosage: UNK, QID
  3. TYVASO DPI [Suspect]
     Active Substance: TREPROSTINIL
     Indication: Pulmonary arterial hypertension
  4. TYVASO DPI [Suspect]
     Active Substance: TREPROSTINIL
     Indication: Pulmonary arterial hypertension
  5. BOSENTAN [Concomitant]
     Active Substance: BOSENTAN
  6. SILDENAFIL [Suspect]
     Active Substance: SILDENAFIL
     Dates: start: 2025
  7. PEPCID [Concomitant]
     Active Substance: FAMOTIDINE
     Dosage: UNK UNK, BID
  8. FLUCONAZOLE [Suspect]
     Active Substance: FLUCONAZOLE

REACTIONS (13)
  - Abdominal discomfort [None]
  - Nausea [None]
  - Abdominal pain [None]
  - Gastrointestinal disorder [None]
  - Abdominal discomfort [None]
  - Abdominal distension [None]
  - Gastrointestinal candidiasis [Recovering/Resolving]
  - Oesophageal candidiasis [None]
  - Chronic gastritis [None]
  - Reactive gastropathy [Recovering/Resolving]
  - Condition aggravated [None]
  - Intestinal obstruction [None]
  - Weight decreased [None]

NARRATIVE: CASE EVENT DATE: 20241201
